FAERS Safety Report 7034069-5 (Version None)
Quarter: 2010Q4

REPORT INFORMATION
  Report Type: 
  Country: None (occurrence: None)
  Receive Date: 20101006
  Receipt Date: 20100927
  Transmission Date: 20110411
  Serious: Yes (Other)
  Sender: FDA-Public Use
  Company Number: 1000015300

PATIENT
  Age: 30 Year
  Sex: Female
  Weight: 77 kg

DRUGS (5)
  1. ESCITALOPRAM [Suspect]
     Indication: DEPRESSION
     Dosage: 5 MG (5 MG, 1 IN 1 D), ORAL
     Route: 048
     Dates: start: 20100708, end: 20100711
  2. ESCITALOPRAM [Suspect]
     Indication: DEPRESSION
     Dosage: 10 MG (10 MG, 1 IN 1 D), ORAL
     Route: 048
     Dates: start: 20100712, end: 20100713
  3. PROPAVAN (PROPIOMAZINE MALEATE) [Concomitant]
  4. ATARAX (ATARAX) (ATARAX) [Concomitant]
  5. OXASCAND (OXAZEPAM) (OXAZEPAM) [Concomitant]

REACTIONS (5)
  - ABDOMINAL PAIN UPPER [None]
  - NAUSEA [None]
  - PAIN [None]
  - PHARYNGEAL OEDEMA [None]
  - VOMITING [None]
